FAERS Safety Report 7724412-3 (Version None)
Quarter: 2011Q3

REPORT INFORMATION
  Report Type: 
  Country: None (occurrence: None)
  Receive Date: 20110901
  Receipt Date: 20110823
  Transmission Date: 20111222
  Serious: Yes (Hospitalization)
  Sender: FDA-Public Use
  Company Number: US-ASTRAZENECA-2011SE50619

PATIENT
  Age: 48 Year
  Sex: Female
  Weight: 99.8 kg

DRUGS (5)
  1. SEROQUEL [Suspect]
     Indication: POST-TRAUMATIC STRESS DISORDER
     Route: 048
     Dates: start: 20100101
  2. PROZAC [Suspect]
     Route: 065
  3. BETA BLOCKER [Suspect]
     Route: 065
  4. HYDROCODONE/ACEDEMIFIN [Concomitant]
     Indication: BACK PAIN
     Dosage: 5-C 125 MILLIGRAM, 6 HOURLY
     Route: 048
  5. AMLODIPINE [Concomitant]
     Indication: HYPERTENSION
     Route: 048
     Dates: start: 20100901

REACTIONS (7)
  - BACK DISORDER [None]
  - CHEST PAIN [None]
  - BACK PAIN [None]
  - MALAISE [None]
  - HYPOTENSION [None]
  - WEIGHT INCREASED [None]
  - PERONEAL NERVE PALSY [None]
